FAERS Safety Report 5235140-0 (Version None)
Quarter: 2007Q1

REPORT INFORMATION
  Report Type: 
  Country: None (occurrence: None)
  Receive Date: 20070207
  Receipt Date: 20070123
  Transmission Date: 20070707
  Serious: Yes (Other)
  Sender: FDA-Public Use
  Company Number: B0456721A

PATIENT
  Sex: Female

DRUGS (6)
  1. NIFEDIPINE [Suspect]
  2. FUROSEMIDE (FUROSEMIDE) (FORMULATION UNKNOWN) [Suspect]
  3. ENOXAPARIN (ENOXAPARIN) (FORMULATION UNKNOWN) [Suspect]
     Dosage: 40 MG / TWICE PER DAY / UNKNOWN
  4. AUGMENTIN '250' [Suspect]
  5. STEROID (STEROID) (FORMULATION UNKNOWN) [Suspect]
  6. BRONCHODILATOR [Concomitant]

REACTIONS (14)
  - ASTHMA [None]
  - CAESAREAN SECTION [None]
  - CARDIAC MURMUR [None]
  - CARDIOMEGALY [None]
  - CONDITION AGGRAVATED [None]
  - DRUG EXPOSURE DURING PREGNANCY [None]
  - JUGULAR VEIN DISTENSION [None]
  - MITRAL VALVE INCOMPETENCE [None]
  - NO THERAPEUTIC RESPONSE [None]
  - PERIPARTUM CARDIOMYOPATHY [None]
  - PREMATURE BABY [None]
  - PULMONARY ARTERIAL PRESSURE DECREASED [None]
  - PULMONARY OEDEMA [None]
  - SINUS TACHYCARDIA [None]
